FAERS Safety Report 21055484 (Version 1)
Quarter: 2022Q3

REPORT INFORMATION
  Report Type: Spontaneous
  Country: PL (occurrence: PL)
  Receive Date: 20220708
  Receipt Date: 20220708
  Transmission Date: 20221027
  Serious: Yes (Other)
  Sender: FDA-Public Use
  Company Number: None

PATIENT
  Age: 76 Year
  Sex: Male
  Weight: 72 kg

DRUGS (4)
  1. OXALIPLATIN [Suspect]
     Active Substance: OXALIPLATIN
     Indication: Colon cancer
     Dosage: DOSE: 152.15 DOSE UNIT: NOT SPECIFIED , UNIT DOSE : 42 DAYS
     Route: 042
     Dates: start: 20181009, end: 20181120
  2. LEUCOVORIN CALCIUM [Suspect]
     Active Substance: LEUCOVORIN CALCIUM
     Indication: Colon cancer
     Dosage: DOSE: 358; DOSE UNIT: NOT SPECIFIED , DURATION : 42 DAYS
     Route: 042
     Dates: start: 20181009, end: 20181120
  3. FLUOROURACIL [Suspect]
     Active Substance: FLUOROURACIL
     Indication: Colon cancer
     Dosage: DOSE: 1074; DOSE UNIT: NOT SPECIFIED // DRUG ADMINISTRATION IN INFUSION PUMP , DURATION : 42 DAYS
     Route: 041
     Dates: start: 20181009, end: 20181120
  4. FLUOROURACIL [Suspect]
     Active Substance: FLUOROURACIL
     Dosage: DOSE: 716; DOSE UNIT: NOT SPECIFIED , DURATION : 42 DAYS
     Route: 040
     Dates: start: 20181009, end: 20181120

REACTIONS (1)
  - Neutropenia [Unknown]

NARRATIVE: CASE EVENT DATE: 20181211
